FAERS Safety Report 5775322-2 (Version None)
Quarter: 2008Q2

REPORT INFORMATION
  Report Type: 
  Country: None (occurrence: None)
  Receive Date: 20080612
  Receipt Date: 20080603
  Transmission Date: 20081010
  Serious: Yes (Other)
  Sender: FDA-Public Use
  Company Number: 2008SP010650

PATIENT
  Sex: Male

DRUGS (2)
  1. PEGETRON (PEGINTERFERON ALFA-2B W/RIBAVIRIN) (PEGYLATED INTERFERON ALF [Suspect]
     Indication: HEPATITIS C
     Dosage: ; SC, 1000 MG; QD; PO
     Dates: start: 20080409
  2. PEGETRON (PEGINTERFERON ALFA-2B W/RIBAVIRIN) (PEGYLATED INTERFERON ALF [Suspect]
     Indication: HEPATITIS C
     Dosage: ; SC, 1000 MG; QD; PO
     Dates: start: 20080409

REACTIONS (2)
  - HYPOGLYCAEMIA [None]
  - REFUSAL OF TREATMENT BY PATIENT [None]
